FAERS Safety Report 16952421 (Version 1)
Quarter: 2019Q4

REPORT INFORMATION
  Report Type: Spontaneous
  Country: US (occurrence: US)
  Receive Date: 20191023
  Receipt Date: 20191023
  Transmission Date: 20200122
  Serious: No
  Sender: FDA-Public Use
  Company Number: US-IBSA PHARMA-TIR-2019-0589

PATIENT
  Age: 60 Year
  Sex: Female
  Weight: 70.37 kg

DRUGS (1)
  1. TIROSINT [Suspect]
     Active Substance: LEVOTHYROXINE SODIUM
     Indication: HYPOTHYROIDISM
     Dosage: 75MCG DAILY
     Route: 048

REACTIONS (3)
  - Insomnia [Unknown]
  - Tri-iodothyronine increased [Unknown]
  - Abdominal discomfort [Unknown]
